FAERS Safety Report 12479082 (Version 1)
Quarter: 2016Q2

REPORT INFORMATION
  Report Type: Spontaneous
  Country: CN (occurrence: CN)
  Receive Date: 20160620
  Receipt Date: 20160620
  Transmission Date: 20160815
  Serious: Yes (Other)
  Sender: FDA-Public Use
  Company Number: CN-ACCORD-041673

PATIENT
  Age: 55 Year
  Sex: Female

DRUGS (1)
  1. AMLODIPINE [Suspect]
     Active Substance: AMLODIPINE BESYLATE
     Indication: HYPERTENSION
     Dosage: 5-10 MG PER DAY

REACTIONS (3)
  - Lichen planus [Not Recovered/Not Resolved]
  - Gingival bleeding [Unknown]
  - Gingival hyperplasia [Recovering/Resolving]
